FAERS Safety Report 25824635 (Version 2)
Quarter: 2025Q4

REPORT INFORMATION
  Report Type: Spontaneous
  Country: US (occurrence: US)
  Receive Date: 20250919
  Receipt Date: 20251003
  Transmission Date: 20260117
  Serious: No
  Sender: MYLAN
  Company Number: US-MYLANLABS-2025M1077050

PATIENT
  Sex: Female

DRUGS (4)
  1. WIXELA INHUB [Suspect]
     Active Substance: FLUTICASONE PROPIONATE\SALMETEROL XINAFOATE
     Indication: Asthma
     Dosage: 250 PER 50 MICROGRAM, BID (T1 PUFF, WICE DAILY)
     Dates: start: 202508
  2. WIXELA INHUB [Suspect]
     Active Substance: FLUTICASONE PROPIONATE\SALMETEROL XINAFOATE
     Dosage: 250 PER 50 MICROGRAM, BID (T1 PUFF, WICE DAILY)
     Route: 055
     Dates: start: 202508
  3. WIXELA INHUB [Suspect]
     Active Substance: FLUTICASONE PROPIONATE\SALMETEROL XINAFOATE
     Dosage: 250 PER 50 MICROGRAM, BID (T1 PUFF, WICE DAILY)
     Route: 055
     Dates: start: 202508
  4. WIXELA INHUB [Suspect]
     Active Substance: FLUTICASONE PROPIONATE\SALMETEROL XINAFOATE
     Dosage: 250 PER 50 MICROGRAM, BID (T1 PUFF, WICE DAILY)
     Dates: start: 202508

REACTIONS (3)
  - Cough [Recovered/Resolved]
  - Dyspnoea [Recovered/Resolved]
  - Drug ineffective [Unknown]

NARRATIVE: CASE EVENT DATE: 20250101
